FAERS Safety Report 7262859-2 (Version None)
Quarter: 2011Q1

REPORT INFORMATION
  Report Type: 
  Country: None (occurrence: None)
  Receive Date: 20110130
  Receipt Date: 20100909
  Transmission Date: 20110831
  Serious: No
  Sender: FDA-Public Use
  Company Number: US-ABBOTT-10P-163-0670768-00

PATIENT
  Sex: Male

DRUGS (10)
  1. FLAXSEED OIL [Concomitant]
     Indication: MEDICAL DIET
  2. LORAZEPAM [Concomitant]
     Indication: INSOMNIA
  3. FISH OIL [Concomitant]
     Indication: SUPPLEMENTATION THERAPY
  4. HUMIRA [Suspect]
     Indication: RHEUMATOID ARTHRITIS
     Route: 058
     Dates: start: 20070101, end: 20090101
  5. HUMIRA [Suspect]
     Indication: RHEUMATOID ARTHRITIS
     Route: 058
     Dates: start: 20090101
  6. LISINOPRIL [Concomitant]
     Indication: HYPERTENSION
  7. LORAZEPAM [Concomitant]
     Indication: ANXIETY
     Dosage: UP TO 4-5 DAILY AS NEEDED
  8. GLUCOSAMINE/CHONDROITIN [Concomitant]
     Indication: SUPPLEMENTATION THERAPY
  9. METHOTREXATE [Concomitant]
     Indication: RHEUMATOID ARTHRITIS
  10. LOVASTATIN [Concomitant]
     Indication: BLOOD CHOLESTEROL INCREASED

REACTIONS (3)
  - PAIN [None]
  - INJECTION SITE PAIN [None]
  - TREMOR [None]
